FAERS Safety Report 5682240-7 (Version None)
Quarter: 2008Q1

REPORT INFORMATION
  Report Type: 
  Country: None (occurrence: None)
  Receive Date: 20080325
  Receipt Date: 20080311
  Transmission Date: 20080703
  Serious: Yes (Life-Threatening, Hospitalization)
  Sender: FDA-Public Use
  Company Number: MK-6029097

PATIENT
  Age: 64 Year
  Sex: Female

DRUGS (7)
  1. SOTALOL (SOTALOL) DOSE, FORM, ROUTE AND FREQUENCY UNKNOWN; UNKOWN [Suspect]
     Indication: ATRIAL FIBRILLATION
  2. CO-AMILOFRUSE (FRUMIL) [Concomitant]
  3. PERINDOPRIL ERBUMINE [Concomitant]
  4. WARFARIN SODIUM [Concomitant]
  5. VERAPAMIL [Suspect]
     Indication: ATRIAL FIBRILLATION
     Dosage: 80 MG; 3 TIMES A DAY
  6. DIGOXIN [Suspect]
     Indication: ATRIAL FIBRILLATION
  7. FRUMIL (FRUMIL) [Concomitant]

REACTIONS (15)
  - ABDOMINAL TENDERNESS [None]
  - ATRIAL FIBRILLATION [None]
  - BRADYCARDIA [None]
  - CARDIAC FAILURE [None]
  - CARDIOACTIVE DRUG LEVEL DECREASED [None]
  - DEPRESSED LEVEL OF CONSCIOUSNESS [None]
  - DRUG INTERACTION [None]
  - DRUG TOXICITY [None]
  - GASTROINTESTINAL SOUNDS ABNORMAL [None]
  - HYPOTENSION [None]
  - LIVEDO RETICULARIS [None]
  - LIVER FUNCTION TEST ABNORMAL [None]
  - METABOLIC ACIDOSIS [None]
  - PULSE ABSENT [None]
  - RENAL FAILURE [None]
